FAERS Safety Report 8168395-3 (Version None)
Quarter: 2012Q1

REPORT INFORMATION
  Report Type: 
  Country: None (occurrence: None)
  Receive Date: 20120227
  Receipt Date: 20120221
  Transmission Date: 20120608
  Serious: Yes (Other)
  Sender: FDA-Public Use
  Company Number: PH-MERCK-1202USA03528

PATIENT
  Age: 47 Year
  Sex: Female

DRUGS (3)
  1. SINGULAIR [Suspect]
     Indication: RHINITIS
     Route: 048
     Dates: start: 20110101, end: 20110101
  2. PREDNISONE [Concomitant]
     Route: 065
  3. SINGULAIR [Suspect]
     Indication: ASTHMA
     Route: 048
     Dates: start: 20110101, end: 20110101

REACTIONS (1)
  - ALLERGIC GRANULOMATOUS ANGIITIS [None]
